FAERS Safety Report 17064536 (Version 2)
Quarter: 2019Q4

REPORT INFORMATION
  Report Type: Spontaneous
  Country: US (occurrence: US)
  Receive Date: 20191122
  Receipt Date: 20191213
  Transmission Date: 20200122
  Serious: No
  Sender: FDA-Public Use
  Company Number: US-PFIZER INC-2019503615

PATIENT
  Age: 65 Year
  Sex: Male
  Weight: 77 kg

DRUGS (17)
  1. TRAMADOL. [Concomitant]
     Active Substance: TRAMADOL
     Dosage: UNK
  2. DULOXETINE. [Concomitant]
     Active Substance: DULOXETINE
     Dosage: 60 MG, UNK
  3. DISULFIRAM. [Concomitant]
     Active Substance: DISULFIRAM
     Dosage: 500 MG, 1X/DAY, (1 PO (ORAL) QAM (EVERY MORNING))
     Route: 048
  4. CHANTIX [Suspect]
     Active Substance: VARENICLINE TARTRATE
     Dosage: 1 MG, UNK, (1 MGX42 TAB AS DIRECTED)
     Route: 048
     Dates: start: 20180920, end: 20190815
  5. LORATADINE. [Concomitant]
     Active Substance: LORATADINE
     Dosage: 10 MG, AS NEEDED (TAKE 1 CAPSULE (60 MG BY MOUTH 2 TIMES PER DAY))
     Route: 048
  6. RANITIDINE. [Concomitant]
     Active Substance: RANITIDINE
     Indication: DYSPEPSIA
     Dosage: 115 MG, 2X/DAY
  7. NAPROXEN. [Concomitant]
     Active Substance: NAPROXEN
     Dosage: 500 MG, AS NEEDED (1 PO (ORAL) BID (2 TIMES A DAY) PRN (AS NEEDED) WITH FOOD)
     Route: 048
  8. LYRICA [Concomitant]
     Active Substance: PREGABALIN
     Dosage: 200 MG, AS NEEDED (1 PO (ORAL) TID (THREE TIMES A DAY) PRN (AS NEEDED))
     Route: 048
  9. DULOXETINE HCL [Concomitant]
     Active Substance: DULOXETINE HYDROCHLORIDE
     Dosage: 60 MG, 2X/DAY
     Route: 048
  10. ACETAMINOPHEN AND CODEINE [Concomitant]
     Active Substance: ACETAMINOPHEN\CODEINE PHOSPHATE
     Dosage: UNK UNK, AS NEEDED ((ACETAMINOPHEN-CODEINE # 3) 300-30 MG ORAL TABLET)
     Route: 048
  11. METOPROLOL SUCCINATE. [Concomitant]
     Active Substance: METOPROLOL SUCCINATE
     Dosage: 50 MG, UNK(1/2 PO (ORAL) QD (ONCE A DAY))
     Route: 048
  12. AMLODIPINE BENAZEPRIL [Concomitant]
     Active Substance: AMLODIPINE BESYLATE\BENAZEPRIL HYDROCHLORIDE
     Indication: BLOOD PRESSURE ABNORMAL
     Dosage: UNK, 1X/DAY (10/40MG, ONCE A DAY)
  13. AMLODIPINE BESYLATE AND BENAZEPRIL HYDROCHLORIDE [Concomitant]
     Active Substance: AMLODIPINE BESYLATE\BENAZEPRIL HYDROCHLORIDE
     Indication: HYPERTENSION
     Dosage: 10-40 MG , 1X/DAY, (1 PO (ORAL) QD (ONCE A DAY))
     Route: 048
  14. CHANTIX [Suspect]
     Active Substance: VARENICLINE TARTRATE
     Indication: SMOKING CESSATION THERAPY
     Dosage: 0.5 MG, UNK, (CHANTIX STARTING PACK 0.5 MG X11 )
     Route: 048
     Dates: start: 20180306
  15. PRAVASTATIN SODIUM. [Concomitant]
     Active Substance: PRAVASTATIN SODIUM
     Dosage: 40 MG, 1X/DAY, (1 PO (ORAL) QHS (BEFORE BED)
     Route: 048
  16. RANITIDINE HCL [Concomitant]
     Active Substance: RANITIDINE HYDROCHLORIDE
     Dosage: 150 MG, 2X/DAY
     Route: 048
  17. NAPROXEN [NICOTINE POLACRILEX] [Concomitant]
     Dosage: 4 MG, AS NEEDED (CHEW 1 PIECE (4MG) BY MOUTH 24 TIMES PER DAY FOR 30 MINUTES AS NEEDED)
     Route: 048

REACTIONS (6)
  - Drug ineffective [Unknown]
  - Vomiting [Recovering/Resolving]
  - Swelling face [Recovering/Resolving]
  - Erythema [Recovering/Resolving]
  - Nausea [Recovering/Resolving]
  - Skin exfoliation [Recovering/Resolving]
